FAERS Safety Report 4384529-0 (Version None)
Quarter: 2004Q2

REPORT INFORMATION
  Report Type: 
  Country: None (occurrence: None)
  Receive Date: 20040610
  Receipt Date: 20040407
  Transmission Date: 20050107
  Serious: Yes (Hospitalization)
  Sender: FDA-Public Use
  Company Number: A03200401081

PATIENT
  Age: 56 Year
  Sex: Female
  Weight: 59.8748 kg

DRUGS (9)
  1. ELOXATIN [Suspect]
     Indication: COLORECTAL CANCER STAGE IV
     Dosage: 100 MG Q2W - INTRAVENOUS NOS
     Route: 042
     Dates: start: 20040323, end: 20040323
  2. FLUOROURACIL [Concomitant]
  3. LEUCOVORIN [Concomitant]
  4. GRANISETRON [Concomitant]
  5. DEXAMETHASONE [Concomitant]
  6. WARFARIN SODIUM [Concomitant]
  7. RANITIDINE HYDROCHLORIDE [Concomitant]
  8. CONJUGATED ESTROGEN [Concomitant]
  9. TOLTERODINE TARTRATE [Concomitant]

REACTIONS (8)
  - CHILLS [None]
  - FLUSHING [None]
  - HEADACHE [None]
  - HYPERSENSITIVITY [None]
  - MALAISE [None]
  - NAUSEA [None]
  - PYREXIA [None]
  - VOMITING [None]
